FAERS Safety Report 7510358-2 (Version None)
Quarter: 2011Q2

REPORT INFORMATION
  Report Type: 
  Country: None (occurrence: None)
  Receive Date: 20110527
  Receipt Date: 20110519
  Transmission Date: 20111010
  Serious: Yes (Hospitalization)
  Sender: FDA-Public Use
  Company Number: FR-GENENTECH-319215

PATIENT
  Sex: Male

DRUGS (1)
  1. SOMATROPIN RDNA [Suspect]
     Indication: FOETAL GROWTH RESTRICTION
     Dosage: 0.038 MG/KG, UNK
     Route: 058
     Dates: start: 20070912

REACTIONS (1)
  - CONDITION AGGRAVATED [None]
